FAERS Safety Report 11877108 (Version 1)
Quarter: 2015Q4

REPORT INFORMATION
  Report Type: Report from Study
  Country: US (occurrence: US)
  Receive Date: 20151229
  Receipt Date: 20151229
  Transmission Date: 20160305
  Serious: Yes (Hospitalization)
  Sender: FDA-Public Use
  Company Number: US-ABBVIE-15P-163-1526373-00

PATIENT
  Age: 38 Year
  Sex: Female

DRUGS (1)
  1. LUPRON DEPOT [Suspect]
     Active Substance: LEUPROLIDE ACETATE
     Indication: UTERINE LEIOMYOMA
     Route: 050
     Dates: start: 20100101, end: 20100401

REACTIONS (15)
  - Haemorrhage [Recovering/Resolving]
  - Anaemia [Recovering/Resolving]
  - Fatigue [Recovering/Resolving]
  - Tendon injury [Not Recovered/Not Resolved]
  - Haemorrhage [Recovering/Resolving]
  - Road traffic accident [Not Recovered/Not Resolved]
  - Myomectomy [Unknown]
  - Trichorrhexis [Not Recovered/Not Resolved]
  - Mood swings [Recovered/Resolved]
  - Onychoclasis [Not Recovered/Not Resolved]
  - Limb injury [Not Recovered/Not Resolved]
  - Uterine leiomyoma [Recovering/Resolving]
  - Nerve injury [Not Recovered/Not Resolved]
  - Hysterectomy [Unknown]
  - Hot flush [Recovered/Resolved]

NARRATIVE: CASE EVENT DATE: 201001
